FAERS Safety Report 9931808 (Version 2)
Quarter: 2014Q2

REPORT INFORMATION
  Report Type: Spontaneous
  Country: DE (occurrence: None)
  Receive Date: 20140226
  Receipt Date: 20140408
  Transmission Date: 20141212
  Serious: Yes (Other)
  Sender: FDA-Public Use
  Company Number: ADR-2014-00285

PATIENT
  Age: 50 Year
  Sex: Male

DRUGS (3)
  1. LIORESAL [Suspect]
  2. MORPHINE [Suspect]
  3. BUPIVACAINE INTRATHECAL [Suspect]
     Dosage: 0.025MG/ML, 0.036216MG/DAY

REACTIONS (6)
  - Underdose [None]
  - Pain in extremity [None]
  - Restlessness [None]
  - Chills [None]
  - Cold sweat [None]
  - Feeling hot [None]
